FAERS Safety Report 10900465 (Version 2)
Quarter: 2015Q2

REPORT INFORMATION
  Report Type: Spontaneous
  Country: US (occurrence: US)
  Receive Date: 20150310
  Receipt Date: 20150402
  Transmission Date: 20150821
  Serious: Yes (Other)
  Sender: FDA-Public Use
  Company Number: US-BEH-2015049378

PATIENT
  Sex: Female
  Weight: 68 kg

DRUGS (20)
  1. ATORVASTATIN [Concomitant]
     Active Substance: ATORVASTATIN
  2. ASTEPRO [Concomitant]
     Active Substance: AZELASTINE HYDROCHLORIDE
  3. PREDNISONE. [Concomitant]
     Active Substance: PREDNISONE
  4. EPIPEN [Concomitant]
     Active Substance: EPINEPHRINE
  5. SINGULAIR [Concomitant]
     Active Substance: MONTELUKAST SODIUM
  6. ROCEPHIN [Concomitant]
     Active Substance: CEFTRIAXONE SODIUM
  7. SPIRIVA [Concomitant]
     Active Substance: TIOTROPIUM BROMIDE MONOHYDRATE
  8. HYALGAN [Concomitant]
     Active Substance: HYALURONATE SODIUM
  9. ERGOCALCIFEROL. [Concomitant]
     Active Substance: ERGOCALCIFEROL
  10. FLUNISOLIDE. [Concomitant]
     Active Substance: FLUNISOLIDE
  11. HIZENTRA [Suspect]
     Active Substance: HUMAN IMMUNOGLOBULIN G
     Dosage: 4 GM 20 ML VIAL; 6 GM WEEKLY;DOSING PERIOD 12-FEB-2015 TO 11-MAR-2015
     Route: 058
  12. ZITHROMAX [Concomitant]
     Active Substance: AZITHROMYCIN DIHYDRATE
  13. LEVAQUIN [Concomitant]
     Active Substance: LEVOFLOXACIN
  14. PROTONIX [Concomitant]
     Active Substance: PANTOPRAZOLE SODIUM
  15. DIPHENHYDRAMINE [Concomitant]
     Active Substance: DIPHENHYDRAMINE
  16. IPRATROPIUM [Concomitant]
     Active Substance: IPRATROPIUM
  17. CARDIZEM [Concomitant]
     Active Substance: DILTIAZEM HYDROCHLORIDE
  18. HIZENTRA [Suspect]
     Active Substance: HUMAN IMMUNOGLOBULIN G
     Indication: IMMUNODEFICIENCY COMMON VARIABLE
     Dosage: 2 GM 10 ML VIAL;6 GM WEEKLY;DOSING PERIOD 12-FEB-2015 TO 11-MAR-2015
     Route: 058
  19. LIDOCAINE PRILOCAINE [Concomitant]
  20. FLAGYL [Concomitant]
     Active Substance: METRONIDAZOLE\METRONIDAZOLE HYDROCHLORIDE

REACTIONS (6)
  - Sinus disorder [Recovering/Resolving]
  - Sinusitis [Recovering/Resolving]
  - Ear haemorrhage [Recovering/Resolving]
  - Infection [Recovering/Resolving]
  - Sinus congestion [Recovering/Resolving]
  - Otitis media [Recovering/Resolving]
